FAERS Safety Report 14926228 (Version 1)
Quarter: 2018Q2

REPORT INFORMATION
  Report Type: Spontaneous
  Country: US (occurrence: US)
  Receive Date: 20180523
  Receipt Date: 20180523
  Transmission Date: 20180711
  Serious: No
  Sender: FDA-Public Use
  Company Number: US-SHIRE-US201819449

PATIENT
  Sex: Female
  Weight: 63.49 kg

DRUGS (2)
  1. LEVOBUNOLOL                        /00892902/ [Concomitant]
     Indication: GLAUCOMA
     Dosage: UNK, 2X/DAY:BID
  2. XIIDRA [Suspect]
     Active Substance: LIFITEGRAST
     Indication: PRODUCT USED FOR UNKNOWN INDICATION
     Dosage: UNK
     Route: 047
     Dates: start: 20180515

REACTIONS (1)
  - Instillation site discharge [Unknown]
